FAERS Safety Report 6586156-3 (Version None)
Quarter: 2010Q1

REPORT INFORMATION
  Report Type: 
  Country: None (occurrence: None)
  Receive Date: 20100217
  Receipt Date: 20090106
  Transmission Date: 20100710
  Serious: Yes (Other)
  Sender: FDA-Public Use
  Company Number: US-ALLERGAN-0900106US

PATIENT

DRUGS (1)
  1. BOTOX COSMETIC [Suspect]
     Indication: DRUG USE FOR UNKNOWN INDICATION
     Dosage: UNK, SINGLE

REACTIONS (1)
  - FACIAL PARESIS [None]
